FAERS Safety Report 14146891 (Version 2)
Quarter: 2020Q1

REPORT INFORMATION
  Report Type: Report from Study
  Country: JP (occurrence: JP)
  Receive Date: 20171031
  Receipt Date: 20200122
  Transmission Date: 20200409
  Serious: Yes (Death, Hospitalization)
  Sender: FDA-Public Use
  Company Number: JP-ASTRAZENECA-2017SF10477

PATIENT
  Age: 83 Year
  Sex: Female
  Weight: 42 kg

DRUGS (6)
  1. FUROSEMIDE. [Concomitant]
     Active Substance: FUROSEMIDE
     Indication: PLEURAL EFFUSION
     Dosage: 20 MG; NUMBER OF SEPARATE DOSAGES UNKNOWN
     Route: 048
  2. LIXIANA [Concomitant]
     Active Substance: EDOXABAN TOSYLATE
     Indication: EMBOLISM
     Dosage: 30 MG; NUMBER OF SEPARATE DOSAGES UNKNOWN
     Route: 048
  3. DAIPHEN [Concomitant]
     Active Substance: SULFAMETHOXAZOLE\TRIMETHOPRIM
     Indication: PNEUMOCYSTIS JIROVECII PNEUMONIA
     Route: 048
  4. LANSOPRAZOLE. [Concomitant]
     Active Substance: LANSOPRAZOLE
     Indication: PROPHYLAXIS
     Dosage: 15 MG; NUMBER OF SEPARATE DOSAGES UNKNOWN
     Route: 048
  5. TAGRISSO [Suspect]
     Active Substance: OSIMERTINIB
     Indication: NON-SMALL CELL LUNG CANCER
     Route: 048
     Dates: start: 20170920, end: 20171026
  6. DECADRON [Concomitant]
     Active Substance: DEXAMETHASONE
     Indication: ASTHMA
     Dosage: 1 MG; NUMBER OF SEPARATE DOSAGES UNKNOWN
     Route: 048

REACTIONS (3)
  - Decreased appetite [Recovering/Resolving]
  - Asthma [Recovering/Resolving]
  - Lung neoplasm malignant [Fatal]

NARRATIVE: CASE EVENT DATE: 20171019
